FAERS Safety Report 9871838 (Version 1)
Quarter: 2014Q1

REPORT INFORMATION
  Report Type: Spontaneous
  Country: US (occurrence: US)
  Receive Date: 20140205
  Receipt Date: 20140205
  Transmission Date: 20141002
  Serious: Yes (Other)
  Sender: FDA-Public Use
  Company Number: -SAAVPROD-THYM-1003843

PATIENT
  Age: 57 Year
  Sex: 0

DRUGS (1)
  1. ANTI-THYMOCYTE GLOBULIN (RABBIT) [Suspect]
     Indication: KIDNEY TRANSPLANT REJECTION
     Dosage: 1.5 MG/KG, (3 DAYS)
     Route: 065

REACTIONS (1)
  - Thrombocytopenia [Unknown]
